FAERS Safety Report 10838153 (Version 1)
Quarter: 2015Q1

REPORT INFORMATION
  Report Type: Report from Study
  Country: US (occurrence: US)
  Receive Date: 20150219
  Receipt Date: 20150219
  Transmission Date: 20150721
  Serious: No
  Sender: FDA-Public Use
  Company Number: US-ABBVIE-14P-163-1226740-00

PATIENT
  Sex: Female

DRUGS (10)
  1. HOLISTIC MEDS [Concomitant]
     Indication: GASTROINTESTINAL INFLAMMATION
  2. DERMATORPHIN PMG [Concomitant]
     Indication: PRODUCT USED FOR UNKNOWN INDICATION
  3. PROSYNBIOTIC [Concomitant]
     Indication: PRODUCT USED FOR UNKNOWN INDICATION
  4. VENLAFAXINE [Concomitant]
     Active Substance: VENLAFAXINE HYDROCHLORIDE
     Indication: DEPRESSION
  5. VITAMIN C [Concomitant]
     Active Substance: ASCORBIC ACID
     Indication: PRODUCT USED FOR UNKNOWN INDICATION
  6. HUMIRA [Suspect]
     Active Substance: ADALIMUMAB
     Indication: COLITIS ULCERATIVE
     Dates: start: 20131203
  7. ENZYCORE [Concomitant]
     Indication: PRODUCT USED FOR UNKNOWN INDICATION
  8. CHLOROPHYLL [Concomitant]
     Indication: PRODUCT USED FOR UNKNOWN INDICATION
  9. VENLAFAXINE [Concomitant]
     Active Substance: VENLAFAXINE HYDROCHLORIDE
     Indication: ANXIETY
  10. MULTIVITAMIN [Concomitant]
     Active Substance: VITAMINS
     Indication: VITAMIN SUPPLEMENTATION

REACTIONS (2)
  - Arthralgia [Recovered/Resolved]
  - Fatigue [Recovered/Resolved]
